FAERS Safety Report 20045910 (Version 1)
Quarter: 2021Q4

REPORT INFORMATION
  Report Type: Spontaneous
  Country: US (occurrence: None)
  Receive Date: 20211108
  Receipt Date: 20211108
  Transmission Date: 20220303
  Serious: No
  Sender: FDA-Public Use
  Company Number: 2021A795173

PATIENT

DRUGS (1)
  1. SYMBICORT [Suspect]
     Active Substance: BUDESONIDE\FORMOTEROL FUMARATE DIHYDRATE
     Dosage: TWO TIMES A DAY
     Route: 055

REACTIONS (5)
  - Productive cough [Unknown]
  - Cough [Not Recovered/Not Resolved]
  - Chronic obstructive pulmonary disease [Unknown]
  - Pneumonia [Unknown]
  - Dyspnoea [Unknown]
